FAERS Safety Report 22174485 (Version 2)
Quarter: 2023Q2

REPORT INFORMATION
  Report Type: Report from Study
  Country: US (occurrence: US)
  Receive Date: 20230405
  Receipt Date: 20230606
  Transmission Date: 20230721
  Serious: Yes (Hospitalization)
  Sender: FDA-Public Use
  Company Number: US-ORG100014127-2023000325

PATIENT
  Age: 26 Year
  Sex: Female

DRUGS (6)
  1. METOPIRONE [Suspect]
     Active Substance: METYRAPONE
     Indication: Adrenocortical carcinoma
     Dosage: 03 CAPSULES 03 TIMES DAILY
     Route: 048
     Dates: start: 20230325, end: 202304
  2. METOPIRONE [Suspect]
     Active Substance: METYRAPONE
     Indication: Adrenocortical carcinoma
     Dosage: 04 CAPSULES 03 TIMES DAILY
     Route: 048
     Dates: start: 202304
  3. CITALOPRAM TAB 10MG [Concomitant]
     Indication: Product used for unknown indication
  4. CODEINE/APAP TAB 60-300MG [Concomitant]
     Indication: Product used for unknown indication
  5. TYLENOL CAP 325MG [Concomitant]
     Indication: Product used for unknown indication
  6. ZANTAC 360 TAB 10MG [Concomitant]
     Indication: Product used for unknown indication

REACTIONS (3)
  - Blood potassium decreased [Unknown]
  - Dizziness [Not Recovered/Not Resolved]
  - Off label use [Not Recovered/Not Resolved]

NARRATIVE: CASE EVENT DATE: 20230301
